FAERS Safety Report 4668704-3 (Version None)
Quarter: 2005Q2

REPORT INFORMATION
  Report Type: 
  Country: None (occurrence: None)
  Receive Date: 20050519
  Receipt Date: 20050512
  Transmission Date: 20051028
  Serious: Yes (Hospitalization, Other)
  Sender: FDA-Public Use
  Company Number: 2005-01387

PATIENT
  Age: 7 Year
  Sex: Female
  Weight: 33 kg

DRUGS (1)
  1. TRELSTAR DEPOT [Suspect]
     Indication: PRECOCIOUS PUBERTY
     Dosage: 3 MG Q  28 DAYS, INTRAMUSCULAR
     Route: 030
     Dates: start: 20050101, end: 20050301

REACTIONS (4)
  - ECCHYMOSIS [None]
  - OFF LABEL USE [None]
  - PETECHIAE [None]
  - THROMBOCYTOPENIA [None]
